FAERS Safety Report 8780131 (Version 1)
Quarter: 2012Q4

REPORT INFORMATION
  Report Type: Spontaneous
  Country: US (occurrence: None)
  Receive Date: 20120831
  Receipt Date: 20120831
  Transmission Date: 20130627
  Serious: Yes (Life-Threatening, Hospitalization)
  Sender: FDA-Public Use
  Company Number: None

PATIENT
  Age: 65 Year
  Sex: Male
  Weight: 88.6 kg

DRUGS (2)
  1. PRADAXA [Suspect]
     Indication: CARDIAC ABLATION
     Route: 048
     Dates: start: 20120412
  2. PRADAXA [Suspect]
     Indication: ATRIAL FIBRILLATION
     Route: 048
     Dates: start: 20120412

REACTIONS (1)
  - Haemorrhage [None]
